FAERS Safety Report 8530928 (Version 3)
Quarter: 2013Q2

REPORT INFORMATION
  Report Type: Spontaneous
  Country: US (occurrence: US)
  Receive Date: 20120426
  Receipt Date: 20130624
  Transmission Date: 20140414
  Serious: No
  Sender: FDA-Public Use
  Company Number: US-PFIZER INC-2012097550

PATIENT
  Age: 47 Year
  Sex: Female

DRUGS (4)
  1. XALKORI [Suspect]
     Indication: LUNG NEOPLASM MALIGNANT
     Dosage: 250 MG, 2X/DAY, (Q12) INDEFINITE DURATION
     Route: 048
     Dates: start: 20120406
  2. HYDROCHLOROTHIAZIDE [Concomitant]
     Indication: HYPERTENSION
     Dosage: DAILY 1X/DAY
  3. INDOMETHACIN [Concomitant]
     Indication: PAIN
     Dosage: MOST RECENT DOSE UNCERTAIN
  4. OXYCODONE/PARACETAMOL [Concomitant]
     Indication: PAIN
     Dosage: MOST RECENT DOSE UNCERTAIN

REACTIONS (6)
  - Nausea [Recovered/Resolved]
  - Vomiting [Recovered/Resolved]
  - Diarrhoea [Recovered/Resolved]
  - Visual impairment [Recovered/Resolved]
  - Disease progression [Unknown]
  - Lung neoplasm malignant [Unknown]
